FAERS Safety Report 14036372 (Version 1)
Quarter: 2017Q4

REPORT INFORMATION
  Report Type: Spontaneous
  Country: US (occurrence: US)
  Receive Date: 20171003
  Receipt Date: 20171003
  Transmission Date: 20180321
  Serious: No
  Sender: FDA-Public Use
  Company Number: US-ROCHE-1906645

PATIENT
  Sex: Male

DRUGS (4)
  1. CLEOCIN [Concomitant]
     Active Substance: CLINDAMYCIN PHOSPHATE
     Route: 065
  2. TECENTRIQ [Suspect]
     Active Substance: ATEZOLIZUMAB
     Indication: COLORECTAL CANCER METASTATIC
     Route: 065
  3. HYDROCORTISONE. [Concomitant]
     Active Substance: HYDROCORTISONE
     Route: 061
  4. COTELLIC [Suspect]
     Active Substance: COBIMETINIB
     Indication: COLORECTAL CANCER METASTATIC
     Route: 048

REACTIONS (2)
  - Off label use [Unknown]
  - Dermatitis acneiform [Not Recovered/Not Resolved]
